FAERS Safety Report 9830100 (Version 1)
Quarter: 2014Q1

REPORT INFORMATION
  Report Type: Spontaneous
  Country: ES (occurrence: ES)
  Receive Date: 20140120
  Receipt Date: 20140120
  Transmission Date: 20141002
  Serious: Yes (Other)
  Sender: FDA-Public Use
  Company Number: ES-AMGEN-ESPSP2014002698

PATIENT
  Sex: 0

DRUGS (1)
  1. NPLATE [Suspect]
     Indication: PRODUCT USED FOR UNKNOWN INDICATION
     Dosage: 4 MG/KG, UNK

REACTIONS (4)
  - Therapeutic response decreased [Unknown]
  - Platelet count abnormal [Unknown]
  - Malaise [Unknown]
  - Arthralgia [Unknown]
